FAERS Safety Report 10481580 (Version 1)
Quarter: 2014Q3

REPORT INFORMATION
  Report Type: Spontaneous
  Country: FR (occurrence: FR)
  Receive Date: 20140929
  Receipt Date: 20140929
  Transmission Date: 20150326
  Serious: Yes (Hospitalization)
  Sender: FDA-Public Use
  Company Number: FR-TEVA-511565USA

PATIENT
  Age: 70 Year
  Sex: Male

DRUGS (13)
  1. GRANOCYTE [Suspect]
     Active Substance: LENOGRASTIM
     Indication: PRODUCT USED FOR UNKNOWN INDICATION
     Route: 058
     Dates: start: 20140807, end: 20140813
  2. GRANOCYTE [Suspect]
     Active Substance: LENOGRASTIM
     Dosage: UNK UNK, UNKNOWN FREQ. DAY 8
     Route: 058
     Dates: start: 20140714, end: 20140721
  3. ZELITREX [Suspect]
     Active Substance: VALACYCLOVIR HYDROCHLORIDE
     Indication: PROPHYLAXIS
     Route: 048
     Dates: start: 20140714, end: 20140820
  4. LEDERFOLINE [Concomitant]
     Active Substance: LEUCOVORIN CALCIUM
     Indication: PRODUCT USED FOR UNKNOWN INDICATION
     Dosage: 25 MG ON SUNDAYS
     Route: 065
     Dates: start: 20140714
  5. MOUTHWASH [Concomitant]
     Indication: PRODUCT USED FOR UNKNOWN INDICATION
     Dosage: UNK, UNKNOWN FREQ., DAY 8
     Route: 065
     Dates: start: 20140714
  6. LEVACT [Suspect]
     Active Substance: BENDAMUSTINE HYDROCHLORIDE
     Dosage: 90 MG/M2= 160 MG, CYCLIC ON DAY 1 AND DAY 2
     Route: 042
     Dates: start: 20140704
  7. FUNGIZONE [Concomitant]
     Active Substance: AMPHOTERICIN B
     Indication: PRODUCT USED FOR UNKNOWN INDICATION
     Dosage: UNK UNK, UNKNOWN FREQ., DAY 8
     Route: 065
     Dates: start: 20140714
  8. BICARBONATE [Concomitant]
     Active Substance: BICARBONATE ION
     Indication: PRODUCT USED FOR UNKNOWN INDICATION
     Dosage: UNK UNK, UNKNOWN FREQ., DAY 8
     Route: 065
     Dates: start: 20140714
  9. BACTRIM [Suspect]
     Active Substance: SULFAMETHOXAZOLE\TRIMETHOPRIM
     Indication: PRODUCT USED FOR UNKNOWN INDICATION
     Route: 048
     Dates: start: 20140714, end: 20140820
  10. MABTHERA [Concomitant]
     Active Substance: RITUXIMAB
     Dosage: UNK,  SECOND CURE ON DAY 1
     Route: 065
     Dates: start: 20140730
  11. ELUDRIL [Concomitant]
     Active Substance: CHLORHEXIDINE GLUCONATE\CHLOROBUTANOL
     Indication: PRODUCT USED FOR UNKNOWN INDICATION
     Dosage: UNK UNK, UNKNOWN FREQ., DAY 8
     Route: 065
     Dates: start: 20140714
  12. MABTHERA [Concomitant]
     Active Substance: RITUXIMAB
     Indication: PRODUCT USED FOR UNKNOWN INDICATION
     Dosage: 500 MG/M2= 900 MG,  DAY 1 AND DAY 2
     Route: 065
     Dates: start: 20140704
  13. LEVACT [Suspect]
     Active Substance: BENDAMUSTINE HYDROCHLORIDE
     Indication: PRODUCT USED FOR UNKNOWN INDICATION
     Dosage: 160 MG, ONCE DAILY, SECOND CURE ON DAY 1 AND DAY 2
     Route: 042
     Dates: start: 20140730, end: 20140731

REACTIONS (2)
  - Face oedema [Recovered/Resolved]
  - Rash maculo-papular [Recovered/Resolved]

NARRATIVE: CASE EVENT DATE: 20140815
